FAERS Safety Report 16024032 (Version 5)
Quarter: 2019Q2

REPORT INFORMATION
  Report Type: Spontaneous
  Country: US (occurrence: US)
  Receive Date: 20190301
  Receipt Date: 20190617
  Transmission Date: 20190711
  Serious: Yes (Hospitalization)
  Sender: FDA-Public Use
  Company Number: US-TAKEDA-2019TUS007387

PATIENT
  Age: 79 Year
  Sex: Female

DRUGS (11)
  1. XARELTO [Concomitant]
     Active Substance: RIVAROXABAN
     Dosage: UNK
     Route: 065
  2. VITAMIN D                          /00107901/ [Concomitant]
     Active Substance: ERGOCALCIFEROL
     Dosage: UNK
     Route: 065
  3. VITAMIN C [Concomitant]
     Active Substance: ASCORBIC ACID
     Dosage: UNK
     Route: 065
  4. VITAMIN B1 [Concomitant]
     Active Substance: THIAMINE HYDROCHLORIDE
     Dosage: UNK
     Route: 065
  5. ASPIRIN 81 [Concomitant]
     Active Substance: ASPIRIN
     Dosage: UNK
     Route: 065
  6. ASPIRIN                            /00002701/ [Concomitant]
     Active Substance: ASPIRIN
     Dosage: UNK
     Route: 065
  7. NINLARO [Suspect]
     Active Substance: IXAZOMIB CITRATE
     Indication: PLASMA CELL MYELOMA
     Dosage: 2.3 MILLIGRAM, 1/WEEK
     Route: 048
     Dates: start: 20190116
  8. AVELOX [Concomitant]
     Active Substance: MOXIFLOXACIN HYDROCHLORIDE
     Dosage: UNK
     Route: 065
  9. AMLODIPINE BESYLATE. [Concomitant]
     Active Substance: AMLODIPINE BESYLATE
     Dosage: UNK
     Route: 065
  10. ALBUTEROL SULFATE. [Concomitant]
     Active Substance: ALBUTEROL SULFATE
     Dosage: UNK
     Route: 065
  11. ATORVASTATIN CALCIUM. [Concomitant]
     Active Substance: ATORVASTATIN CALCIUM
     Dosage: UNK
     Route: 065

REACTIONS (4)
  - Urinary tract infection [Unknown]
  - Balance disorder [Unknown]
  - Confusional state [Unknown]
  - Asthenia [Unknown]

NARRATIVE: CASE EVENT DATE: 20190210
